FAERS Safety Report 4280526-4 (Version None)
Quarter: 2004Q1

REPORT INFORMATION
  Report Type: 
  Country: None (occurrence: None)
  Receive Date: 20040127
  Receipt Date: 20040120
  Transmission Date: 20041129
  Serious: Yes (Hospitalization)
  Sender: FDA-Public Use
  Company Number: 2004GB00027

PATIENT
  Age: 57 Year
  Sex: Male
  Weight: 71.9 kg

DRUGS (4)
  1. GEFITINIB [Suspect]
     Indication: COLORECTAL CANCER
     Dosage: 250 MG QD PO
     Route: 048
     Dates: start: 20031211, end: 20040105
  2. GEFITINIB [Suspect]
     Indication: COLORECTAL CANCER
     Dosage: 250 MG QD PO
     Route: 048
     Dates: start: 20040113
  3. IRIINOTECAN [Suspect]
     Indication: COLORECTAL CANCER
     Dosage: 225 MG/M2 IV
     Route: 042
     Dates: start: 20031209, end: 20031230
  4. TRAMADOL HCL [Concomitant]

REACTIONS (4)
  - DEHYDRATION [None]
  - DIARRHOEA [None]
  - FEBRILE NEUTROPENIA [None]
  - NAUSEA [None]
